FAERS Safety Report 10135937 (Version 1)
Quarter: 2014Q2

REPORT INFORMATION
  Report Type: Spontaneous
  Country: US (occurrence: US)
  Receive Date: 20140429
  Receipt Date: 20140429
  Transmission Date: 20141212
  Serious: Yes (Other)
  Sender: FDA-Public Use
  Company Number: US-ROCHE-1390543

PATIENT
  Age: 67 Year
  Sex: Male
  Weight: 123.03 kg

DRUGS (4)
  1. PEGASYS [Suspect]
     Indication: HEPATITIS C
     Route: 058
     Dates: start: 20140311, end: 20140424
  2. PEGASYS [Suspect]
     Route: 058
  3. RIBAPAK [Concomitant]
     Indication: HEPATITIS C
     Route: 048
     Dates: start: 20140311
  4. SOVALDI [Concomitant]
     Indication: HEPATITIS C
     Route: 048
     Dates: start: 20140311

REACTIONS (2)
  - Haemorrhage [Unknown]
  - Platelet count decreased [Unknown]
